FAERS Safety Report 7038860-0 (Version None)
Quarter: 2010Q4

REPORT INFORMATION
  Report Type: 
  Country: None (occurrence: None)
  Receive Date: 20101012
  Receipt Date: 20101005
  Transmission Date: 20110411
  Serious: Yes (Death)
  Sender: FDA-Public Use
  Company Number: BR-SHIRE-SPV1-2010-01451

PATIENT
  Sex: Male

DRUGS (1)
  1. ELAPRASE [Suspect]
     Indication: MUCOPOLYSACCHARIDOSIS II
     Dosage: 2 VIALS, 1X/WEEK
     Route: 041
     Dates: start: 20080509, end: 20100729

REACTIONS (1)
  - RESPIRATORY FAILURE [None]
